FAERS Safety Report 7654922-9 (Version None)
Quarter: 2011Q3

REPORT INFORMATION
  Report Type: 
  Country: None (occurrence: None)
  Receive Date: 20110804
  Receipt Date: 20110726
  Transmission Date: 20111222
  Serious: Yes (Disabling, Other)
  Sender: FDA-Public Use
  Company Number: US-SHIRE-ALL1-2011-02495

PATIENT
  Age: 43 Year
  Sex: Female
  Weight: 49.433 kg

DRUGS (1)
  1. VYVANSE [Suspect]
     Indication: PRODUCT USED FOR UNKNOWN INDICATION
     Dosage: 30 MG, 1X/DAY:QD
     Route: 048
     Dates: end: 20110101

REACTIONS (13)
  - NERVOUS SYSTEM DISORDER [None]
  - CONFUSIONAL STATE [None]
  - PAIN [None]
  - BLOOD PRESSURE ABNORMAL [None]
  - TINNITUS [None]
  - DYSPHONIA [None]
  - SYNCOPE [None]
  - CHEST PAIN [None]
  - ACTIVITIES OF DAILY LIVING IMPAIRED [None]
  - LIVEDO RETICULARIS [None]
  - DISABILITY [None]
  - ASTHENIA [None]
  - NAUSEA [None]
